FAERS Safety Report 12397792 (Version 1)
Quarter: 2016Q2

REPORT INFORMATION
  Report Type: Spontaneous
  Country: US (occurrence: None)
  Receive Date: 20160523
  Receipt Date: 20160523
  Transmission Date: 20160815
  Serious: No
  Sender: FDA-Public Use
  Company Number: None

PATIENT
  Age: 50 Year
  Sex: Female

DRUGS (10)
  1. FILGRASTIM [Concomitant]
     Active Substance: FILGRASTIM
  2. MORPHINE [Concomitant]
     Active Substance: MORPHINE
  3. FLUCONAZOLE. [Concomitant]
     Active Substance: FLUCONAZOLE
  4. VISCOUS [Concomitant]
  5. BENZOCAINE-MENTHOL [Concomitant]
  6. LIDOCAINE. [Concomitant]
     Active Substance: LIDOCAINE
  7. METHOTREXATE [Suspect]
     Active Substance: METHOTREXATE
     Route: 042
  8. VANCOMYCIN [Concomitant]
     Active Substance: VANCOMYCIN
  9. ACYCLOVIR. [Concomitant]
     Active Substance: ACYCLOVIR
  10. MELPHALAN [Suspect]
     Active Substance: MELPHALAN
     Indication: STEM CELL TRANSPLANT
     Route: 042
     Dates: start: 20160222

REACTIONS (2)
  - Mucosal inflammation [None]
  - Neutrophil count decreased [None]

NARRATIVE: CASE EVENT DATE: 20160305
